FAERS Safety Report 4430282-1 (Version None)
Quarter: 2004Q3

REPORT INFORMATION
  Report Type: 
  Country: None (occurrence: None)
  Receive Date: 20040817
  Receipt Date: 20040806
  Transmission Date: 20050211
  Serious: Yes (Death, Life-Threatening, Disabling, Other)
  Sender: FDA-Public Use
  Company Number: 2004214226GB

PATIENT
  Age: 80 Year
  Sex: Female
  Weight: 67 kg

DRUGS (6)
  1. CELEBREX [Suspect]
     Indication: OSTEOARTHRITIS
     Dosage: BID, ORAL
     Route: 048
     Dates: start: 20020205
  2. DIGOXIN [Concomitant]
  3. DIDRONEL PMO [Concomitant]
  4. FRUSEMIDE [Concomitant]
  5. FLUOXETINE HYDROCHLORIDE [Concomitant]
  6. CO-PROXAMOL (DEXTROPROPOXYPHENE HYDROCHLORIDE) [Concomitant]

REACTIONS (4)
  - AORTIC ANEURYSM RUPTURE [None]
  - ATHEROSCLEROSIS [None]
  - HAEMOTHORAX [None]
  - VENTRICULAR HYPERTROPHY [None]
